FAERS Safety Report 11358511 (Version 1)
Quarter: 2015Q3

REPORT INFORMATION
  Report Type: Spontaneous
  Country: US (occurrence: US)
  Receive Date: 20150803
  Receipt Date: 20150803
  Transmission Date: 20151125
  Serious: Yes (Hospitalization)
  Sender: FDA-Public Use
  Company Number: US-ELI_LILLY_AND_COMPANY-USA030536639

PATIENT
  Age: 34 Year
  Sex: Male
  Weight: 113.64 kg

DRUGS (2)
  1. XANAX [Concomitant]
     Active Substance: ALPRAZOLAM
  2. ZYPREXA [Suspect]
     Active Substance: OLANZAPINE
     Indication: ANTIDEPRESSANT THERAPY
     Dosage: 10 MG, DAILY (1/D)
     Route: 048
     Dates: start: 200011, end: 200304

REACTIONS (5)
  - Weight increased [Unknown]
  - Diabetes mellitus [Not Recovered/Not Resolved]
  - Depression [Unknown]
  - Hyperhidrosis [Unknown]
  - Blood glucose increased [Recovering/Resolving]

NARRATIVE: CASE EVENT DATE: 200303
